FAERS Safety Report 16609894 (Version 1)
Quarter: 2019Q3

REPORT INFORMATION
  Report Type: Spontaneous
  Country: FR (occurrence: FR)
  Receive Date: 20190722
  Receipt Date: 20190722
  Transmission Date: 20191004
  Serious: Yes (Life-Threatening, Hospitalization, Other)
  Sender: FDA-Public Use
  Company Number: FR-MYLANLABS-2019M1067736

PATIENT
  Age: 31 Year
  Sex: Female

DRUGS (2)
  1. EPINEPHRINE. [Suspect]
     Active Substance: EPINEPHRINE
     Indication: ANAPHYLACTIC REACTION
     Dosage: REPEATED INTRAVENOUS BOLUS DOSES OF 0.1 MG ADMINISTERED TO ATTAIN A TOTAL CUMULATIVE DOSE OF 0.8 MG
     Route: 040
  2. POLARAMINE [Concomitant]
     Active Substance: DEXCHLORPHENIRAMINE MALEATE
     Indication: ANAPHYLACTIC REACTION
     Route: 040

REACTIONS (3)
  - Incorrect route of product administration [Recovered/Resolved]
  - Cardiogenic shock [Recovered/Resolved]
  - Overdose [Recovered/Resolved]
